FAERS Safety Report 7733087-9 (Version None)
Quarter: 2011Q3

REPORT INFORMATION
  Report Type: 
  Country: None (occurrence: None)
  Receive Date: 20110907
  Receipt Date: 20110901
  Transmission Date: 20111222
  Serious: Yes (Hospitalization)
  Sender: FDA-Public Use
  Company Number: DE-MERCK-1109DEU00006

PATIENT
  Age: 68 Year
  Sex: Female
  Weight: 84 kg

DRUGS (2)
  1. SITAGLIPTIN PHOSPHATE [Suspect]
     Indication: TYPE 2 DIABETES MELLITUS
     Route: 048
  2. JANUMET [Suspect]
     Indication: TYPE 2 DIABETES MELLITUS
     Route: 048

REACTIONS (10)
  - ADVERSE EVENT [None]
  - ANAEMIA VITAMIN B12 DEFICIENCY [None]
  - DEPRESSION [None]
  - WEIGHT DECREASED [None]
  - DIZZINESS [None]
  - RENAL FAILURE [None]
  - ABDOMINAL PAIN LOWER [None]
  - HYPERTENSION [None]
  - DIVERTICULUM [None]
  - FATIGUE [None]
